FAERS Safety Report 5226804-3 (Version None)
Quarter: 2007Q1

REPORT INFORMATION
  Report Type: 
  Country: None (occurrence: None)
  Receive Date: 20070130
  Receipt Date: 20070116
  Transmission Date: 20070707
  Serious: Yes (Life-Threatening, Other)
  Sender: FDA-Public Use
  Company Number: NALJP-07-0055

PATIENT
  Age: 70 Year
  Sex: Female
  Weight: 46 kg

DRUGS (5)
  1. NAROPIN [Suspect]
     Indication: EPIDURAL ANAESTHESIA
     Dosage: 15 MG, EPIDURAL
     Route: 008
  2. NAROPIN [Suspect]
     Indication: GENERAL ANAESTHESIA
     Dosage: 15 MG, EPIDURAL
     Route: 008
  3. DIPRIVAN [Suspect]
     Indication: EPIDURAL ANAESTHESIA
     Dosage: INTRAVENOUS
     Route: 042
  4. DIPRIVAN [Suspect]
     Indication: GENERAL ANAESTHESIA
     Dosage: INTRAVENOUS
     Route: 042
  5. OXYGEN (OXYGEN) [Concomitant]

REACTIONS (7)
  - ARTERIOSPASM CORONARY [None]
  - ATRIAL FIBRILLATION [None]
  - ATRIOVENTRICULAR BLOCK COMPLETE [None]
  - BLOOD PRESSURE DECREASED [None]
  - BRADYCARDIA [None]
  - NO THERAPEUTIC RESPONSE [None]
  - VENTRICULAR TACHYCARDIA [None]
